FAERS Safety Report 13171874 (Version 1)
Quarter: 2017Q1

REPORT INFORMATION
  Report Type: Spontaneous
  Country: US (occurrence: US)
  Receive Date: 20170201
  Receipt Date: 20170201
  Transmission Date: 20170428
  Serious: No
  Sender: FDA-Public Use
  Company Number: US-PFIZER INC-2017034801

PATIENT
  Age: 87 Year
  Sex: Female

DRUGS (6)
  1. REVATIO [Suspect]
     Active Substance: SILDENAFIL CITRATE
     Indication: DYSPNOEA
     Dosage: 20 MG, 3X/DAY
     Route: 048
     Dates: start: 20170126
  2. FUROSEMIDE. [Concomitant]
     Active Substance: FUROSEMIDE
     Dosage: 80 MG, DAILY (40 MG TWO A DAY)
  3. REVATIO [Suspect]
     Active Substance: SILDENAFIL CITRATE
     Indication: LUNG DISORDER
  4. CELEBREX [Concomitant]
     Active Substance: CELECOXIB
     Indication: ARTHRITIS
     Dosage: 200 MG, 1X/DAY
  5. COUMADIN [Concomitant]
     Active Substance: WARFARIN SODIUM
     Dosage: HALF TABLET 4 DAYS A WEEK AND ONE TABLET 3 DAYS A WEEK (DOSE: 20MG)
     Route: 048
  6. REVATIO [Suspect]
     Active Substance: SILDENAFIL CITRATE
     Indication: PULMONARY HYPERTENSION
     Dosage: UNK, 3XDAY
     Dates: end: 20170101

REACTIONS (2)
  - Body height decreased [Unknown]
  - Weight decreased [Unknown]
